FAERS Safety Report 16694827 (Version 3)
Quarter: 2019Q3

REPORT INFORMATION
  Report Type: Spontaneous
  Country: US (occurrence: US)
  Receive Date: 20190812
  Receipt Date: 20190927
  Transmission Date: 20191004
  Serious: Yes (Hospitalization, Other)
  Sender: FDA-Public Use
  Company Number: US-NOVOPROD-677789

PATIENT
  Age: 76 Year
  Sex: Male

DRUGS (2)
  1. TRESIBA [Suspect]
     Active Substance: INSULIN DEGLUDEC
     Dosage: 10-12 UNITS DAILY
     Route: 058
     Dates: start: 2019
  2. TRESIBA [Suspect]
     Active Substance: INSULIN DEGLUDEC
     Indication: PRODUCT USED FOR UNKNOWN INDICATION
     Dosage: 15-20 UNITS DAILY
     Route: 058

REACTIONS (9)
  - Cellulitis [Unknown]
  - Scrotal erythema [Not Recovered/Not Resolved]
  - Blood glucose abnormal [Unknown]
  - Hypoglycaemic unconsciousness [Unknown]
  - Weight decreased [Unknown]
  - Expired product administered [Unknown]
  - Toxicity to various agents [Not Recovered/Not Resolved]
  - Malaise [Not Recovered/Not Resolved]
  - Arthropathy [Not Recovered/Not Resolved]

NARRATIVE: CASE EVENT DATE: 1991
